FAERS Safety Report 14314839 (Version 1)
Quarter: 2017Q4

REPORT INFORMATION
  Report Type: Report from Study
  Country: PT (occurrence: PT)
  Receive Date: 20171221
  Receipt Date: 20171221
  Transmission Date: 20180321
  Serious: Yes (Death)
  Sender: FDA-Public Use
  Company Number: PT-BAYER-2017-245359

PATIENT

DRUGS (2)
  1. ASPIRIN. [Suspect]
     Active Substance: ASPIRIN
     Indication: PREMEDICATION
     Dosage: UNK
  2. CLOPIDOGREL [Suspect]
     Active Substance: CLOPIDOGREL BISULFATE
     Indication: PREMEDICATION
     Dosage: UNK

REACTIONS (3)
  - Contraindicated product administered [None]
  - Drug interaction [None]
  - Retroperitoneal haemorrhage [Fatal]
